FAERS Safety Report 23986139 (Version 1)
Quarter: 2024Q2

REPORT INFORMATION
  Report Type: Spontaneous
  Country: US (occurrence: US)
  Receive Date: 20240618
  Receipt Date: 20240618
  Transmission Date: 20240716
  Serious: No
  Sender: FDA-Public Use
  Company Number: US-ELI_LILLY_AND_COMPANY-US202406009662

PATIENT
  Sex: Female

DRUGS (2)
  1. MOUNJARO [Suspect]
     Active Substance: TIRZEPATIDE
     Indication: Type 2 diabetes mellitus
     Dosage: UNK UNK, UNKNOWN
     Route: 065
  2. INSULINA [INSULIN NOS] [Concomitant]
     Indication: Product used for unknown indication
     Dosage: 75 U, BID
     Route: 065

REACTIONS (3)
  - Hypoglycaemia [Unknown]
  - Eructation [Unknown]
  - Diarrhoea [Unknown]
